FAERS Safety Report 8398704-1 (Version None)
Quarter: 2012Q2

REPORT INFORMATION
  Report Type: 
  Country: None (occurrence: None)
  Receive Date: 20120531
  Receipt Date: 20120528
  Transmission Date: 20120825
  Serious: Yes (Hospitalization)
  Sender: FDA-Public Use
  Company Number: CN-ROCHE-1072960

PATIENT
  Age: 22 Year
  Sex: Female

DRUGS (1)
  1. CEFTRIAXONE SODIUM [Suspect]
     Indication: UPPER RESPIRATORY TRACT INFECTION
     Route: 041

REACTIONS (3)
  - URETERIC OBSTRUCTION [None]
  - CALCULUS URETERIC [None]
  - RENAL FAILURE ACUTE [None]
